FAERS Safety Report 4504766-1 (Version None)
Quarter: 2004Q4

REPORT INFORMATION
  Report Type: 
  Country: None (occurrence: None)
  Receive Date: 20041118
  Receipt Date: 20041109
  Transmission Date: 20050328
  Serious: Yes (Life-Threatening, Hospitalization, Disabling)
  Sender: FDA-Public Use
  Company Number: US-MERCK-0411USA01743

PATIENT
  Age: 65 Year
  Sex: Female

DRUGS (7)
  1. VIOXX [Suspect]
     Indication: RHEUMATOID ARTHRITIS
     Route: 048
     Dates: start: 20030701, end: 20040930
  2. HUMIRA [Concomitant]
     Route: 065
  3. SYNTHROID [Concomitant]
     Route: 065
  4. GLYBURIDE [Concomitant]
     Route: 065
  5. TENORMIN [Concomitant]
     Route: 065
  6. MAXZIDE [Concomitant]
     Route: 065
  7. PREDNISONE [Concomitant]
     Route: 065

REACTIONS (1)
  - MYOCARDIAL INFARCTION [None]
